FAERS Safety Report 7552483-6 (Version None)
Quarter: 2011Q2

REPORT INFORMATION
  Report Type: 
  Country: None (occurrence: None)
  Receive Date: 20110616
  Receipt Date: 20110607
  Transmission Date: 20111010
  Serious: Yes (Hospitalization)
  Sender: FDA-Public Use
  Company Number: FR-B.I. PHARMACEUTICALS,INC./RIDGEFIELD-2011-FF-00563FF

PATIENT
  Sex: Female
  Weight: 65 kg

DRUGS (3)
  1. KETOPROFEN [Concomitant]
     Dosage: 200 MG
     Dates: start: 20110104, end: 20110105
  2. PRADAXA [Suspect]
     Indication: HIP ARTHROPLASTY
     Dosage: 220 MG
     Route: 048
     Dates: start: 20110105
  3. TRANEXAMIC ACID [Concomitant]
     Dosage: 3000 NR
     Dates: start: 20110104

REACTIONS (1)
  - JOINT DISLOCATION [None]
